FAERS Safety Report 7484295-6 (Version None)
Quarter: 2011Q2

REPORT INFORMATION
  Report Type: 
  Country: None (occurrence: None)
  Receive Date: 20110517
  Receipt Date: 20101123
  Transmission Date: 20111010
  Serious: Yes (Hospitalization, Other)
  Sender: FDA-Public Use
  Company Number: US-BAYER-201038078NA

PATIENT
  Age: 29 Year
  Sex: Female

DRUGS (5)
  1. YASMIN [Suspect]
     Indication: CONTRACEPTION
     Dosage: UNK
     Dates: start: 20011101, end: 20041001
  2. YAZ [Suspect]
     Indication: CONTRACEPTION
     Dosage: UNK
     Dates: start: 20011101, end: 20041001
  3. IBUPROFEN [Concomitant]
     Dosage: UNK, PRN
  4. DROSPIRENONE AND ETHINYL ESTRADIOL [Suspect]
     Indication: ACNE
  5. CENTRUM [Concomitant]
     Dosage: UNK
     Dates: start: 20010101

REACTIONS (2)
  - DEEP VEIN THROMBOSIS [None]
  - PAIN [None]
